FAERS Safety Report 19441804 (Version 2)
Quarter: 2021Q2

REPORT INFORMATION
  Report Type: Spontaneous
  Country: RO (occurrence: RO)
  Receive Date: 20210621
  Receipt Date: 20210623
  Transmission Date: 20210717
  Serious: Yes (Hospitalization)
  Sender: FDA-Public Use
  Company Number: RO-ORION CORPORATION ORION PHARMA-ENTC2021-0134

PATIENT
  Age: 69 Year
  Sex: Female

DRUGS (4)
  1. STALEVO [Suspect]
     Active Substance: CARBIDOPA\ENTACAPONE\LEVODOPA
     Indication: PARKINSON^S DISEASE
     Dosage: STRENGTH: 100/25/200 MG
     Route: 065
  2. DUODOPA [Suspect]
     Active Substance: CARBIDOPA\LEVODOPA
     Indication: PARKINSON^S DISEASE
     Dosage: DM=6.20 DC=2.30 ED=1.00 NRED=4; DMN=0.00 DCN=0.00 EDN=0.00 NREDN=0)
     Route: 050
     Dates: start: 20170525
  3. DUODOPA [Suspect]
     Active Substance: CARBIDOPA\LEVODOPA
     Dosage: DM 6.20, DC 2.50, ED 1.00, NRED 4, DMN 0.00, DCN 0.00, EDN 0.00, NREDN 0.
     Route: 050
  4. DUODOPA [Suspect]
     Active Substance: CARBIDOPA\LEVODOPA
     Dosage: CONTINUOUS DOSE WAS DECREASED
     Route: 050

REACTIONS (3)
  - Dyskinesia [Recovered/Resolved]
  - Weight decreased [Not Recovered/Not Resolved]
  - Reflux gastritis [Unknown]

NARRATIVE: CASE EVENT DATE: 20210420
